FAERS Safety Report 5417297-1 (Version None)
Quarter: 2007Q3

REPORT INFORMATION
  Report Type: 
  Country: None (occurrence: None)
  Receive Date: 20070814
  Receipt Date: 20070730
  Transmission Date: 20080115
  Serious: Yes (Other)
  Sender: FDA-Public Use
  Company Number: 016656

PATIENT
  Age: 19 Year
  Sex: Male

DRUGS (6)
  1. CLARAVIS [Suspect]
     Indication: ACNE
     Dosage: 40 MG, BID, ORAL; 30 MG, BID, ORAL; 40 MG, BID, ORAL; 60 MG, BID, ORAL; 80 MG, BID, ORAL
     Route: 048
     Dates: start: 20070201, end: 20070314
  2. CLARAVIS [Suspect]
     Indication: ACNE
     Dosage: 40 MG, BID, ORAL; 30 MG, BID, ORAL; 40 MG, BID, ORAL; 60 MG, BID, ORAL; 80 MG, BID, ORAL
     Route: 048
     Dates: start: 20070315, end: 20070425
  3. CLARAVIS [Suspect]
     Indication: ACNE
     Dosage: 40 MG, BID, ORAL; 30 MG, BID, ORAL; 40 MG, BID, ORAL; 60 MG, BID, ORAL; 80 MG, BID, ORAL
     Route: 048
     Dates: start: 20070426, end: 20070523
  4. CLARAVIS [Suspect]
     Indication: ACNE
     Dosage: 40 MG, BID, ORAL; 30 MG, BID, ORAL; 40 MG, BID, ORAL; 60 MG, BID, ORAL; 80 MG, BID, ORAL
     Route: 048
     Dates: start: 20070619, end: 20070601
  5. CLARAVIS [Suspect]
     Indication: ACNE
     Dosage: 40 MG, BID, ORAL; 30 MG, BID, ORAL; 40 MG, BID, ORAL; 60 MG, BID, ORAL; 80 MG, BID, ORAL
     Route: 048
     Dates: start: 20070524, end: 20070618
  6. MULTIVITAMIN [Concomitant]

REACTIONS (10)
  - ABNORMAL BEHAVIOUR [None]
  - ARTHRALGIA [None]
  - DEPRESSION [None]
  - EPISTAXIS [None]
  - HANGNAIL [None]
  - HEADACHE [None]
  - MOOD ALTERED [None]
  - NAIL BED BLEEDING [None]
  - PARANOIA [None]
  - SUICIDAL IDEATION [None]
